FAERS Safety Report 9757611 (Version 1)
Quarter: 2013Q4

REPORT INFORMATION
  Report Type: Spontaneous
  Country: US (occurrence: US)
  Receive Date: 20131216
  Receipt Date: 20131216
  Transmission Date: 20140711
  Serious: No
  Sender: FDA-Public Use
  Company Number: US-009507513-1312USA004205

PATIENT
  Sex: Male

DRUGS (1)
  1. VYTORIN [Suspect]
     Indication: HYPERLIPIDAEMIA
     Dosage: DAILY, ^LESS THAN 10 DAYS^
     Route: 048
     Dates: start: 2013, end: 2013

REACTIONS (1)
  - Rash pruritic [Recovering/Resolving]
